FAERS Safety Report 10013941 (Version 1)
Quarter: 2014Q1

REPORT INFORMATION
  Report Type: Spontaneous
  Country: US (occurrence: US)
  Receive Date: 20140316
  Receipt Date: 20140316
  Transmission Date: 20141002
  Serious: No
  Sender: FDA-Public Use
  Company Number: US-LUNDBECK-DKLU1096566

PATIENT
  Age: 8 Year
  Sex: Female

DRUGS (5)
  1. ONFI [Suspect]
     Indication: CONVULSION
  2. ONFI [Suspect]
     Dates: start: 20140108
  3. TRILEPTAL [Concomitant]
     Indication: PRODUCT USED FOR UNKNOWN INDICATION
  4. LAMICTAL [Concomitant]
     Indication: PRODUCT USED FOR UNKNOWN INDICATION
  5. LAMICTAL [Concomitant]

REACTIONS (1)
  - Rash [Unknown]
